FAERS Safety Report 7606516-9 (Version None)
Quarter: 2011Q3

REPORT INFORMATION
  Report Type: 
  Country: None (occurrence: None)
  Receive Date: 20110713
  Receipt Date: 20110711
  Transmission Date: 20111222
  Serious: Yes (Other)
  Sender: FDA-Public Use
  Company Number: US-BAYER-2011-050854

PATIENT
  Sex: Female
  Weight: 66.213 kg

DRUGS (2)
  1. MIRENA [Suspect]
     Indication: MENORRHAGIA
     Dosage: 20 MCG/24HR, CONT
     Route: 015
     Dates: start: 20101001, end: 20110601
  2. LUPRON DEPOT [Concomitant]
     Indication: ENDOMETRIOSIS

REACTIONS (2)
  - DEVICE DISLOCATION [None]
  - DEVICE ISSUE [None]
